FAERS Safety Report 7999127-7 (Version None)
Quarter: 2011Q4

REPORT INFORMATION
  Report Type: 
  Country: None (occurrence: None)
  Receive Date: 20111221
  Receipt Date: 20111213
  Transmission Date: 20120403
  Serious: Yes (Other)
  Sender: FDA-Public Use
  Company Number: US-CELGENEUS-163-21880-11121699

PATIENT
  Sex: Female
  Weight: 79.38 kg

DRUGS (2)
  1. REVLIMID [Suspect]
     Dosage: 15 MILLIGRAM
     Route: 048
     Dates: start: 20111201
  2. REVLIMID [Suspect]
     Indication: MULTIPLE MYELOMA
     Dosage: 25 MILLIGRAM
     Route: 048
     Dates: start: 20111004, end: 20111201

REACTIONS (5)
  - RENAL FAILURE [None]
  - DEHYDRATION [None]
  - ANAEMIA [None]
  - CARDIAC DISORDER [None]
  - HYPOTENSION [None]
